FAERS Safety Report 5354093-8 (Version None)
Quarter: 2007Q2

REPORT INFORMATION
  Report Type: 
  Country: None (occurrence: None)
  Receive Date: 20070612
  Receipt Date: 20070608
  Transmission Date: 20071010
  Serious: Yes (Hospitalization)
  Sender: FDA-Public Use
  Company Number: B0474474A

PATIENT
  Age: 73 Year
  Sex: Female
  Weight: 85 kg

DRUGS (2)
  1. CEFUROXIME [Suspect]
     Dosage: 250MG TWICE PER DAY
     Route: 048
     Dates: start: 20070217, end: 20070221
  2. IZILOX [Concomitant]
     Dosage: 400MG PER DAY
     Route: 048
     Dates: start: 20070210, end: 20070216

REACTIONS (3)
  - DERMATITIS EXFOLIATIVE [None]
  - PRURITUS [None]
  - SKIN LESION [None]
